FAERS Safety Report 4266136-3 (Version None)
Quarter: 2004Q1

REPORT INFORMATION
  Report Type: 
  Country: None (occurrence: None)
  Receive Date: 20040106
  Receipt Date: 20031218
  Transmission Date: 20041129
  Serious: Yes (Other)
  Sender: FDA-Public Use
  Company Number: GB-JNJFOC-20031201364

PATIENT
  Age: 39 Year
  Sex: Female
  Weight: 58.9676 kg

DRUGS (3)
  1. RISPERDAL [Suspect]
     Indication: ACUTE PSYCHOSIS
     Dosage: 1 MG, 2 IN 1 DAY, ORAL
     Route: 048
     Dates: start: 20031117, end: 20031209
  2. RISPERDAL [Suspect]
     Indication: HYPOMANIA
     Dosage: 1 MG, 2 IN 1 DAY, ORAL
     Route: 048
     Dates: start: 20031117, end: 20031209
  3. LORAZEPAM [Concomitant]

REACTIONS (2)
  - LEUKOPENIA [None]
  - NEUTROPENIA [None]
